FAERS Safety Report 23773700 (Version 2)
Quarter: 2024Q2

REPORT INFORMATION
  Report Type: Spontaneous
  Country: US (occurrence: US)
  Receive Date: 20240423
  Receipt Date: 20240610
  Transmission Date: 20240716
  Serious: No
  Sender: FDA-Public Use
  Company Number: US-GUERBET / LLC-US-20240016

PATIENT
  Age: 61 Year
  Sex: Female
  Weight: 47.627 kg

DRUGS (2)
  1. DOTAREM [Suspect]
     Active Substance: GADOTERATE MEGLUMINE
     Indication: Magnetic resonance imaging head
     Route: 042
     Dates: start: 20231206, end: 20231206
  2. DOTAREM [Suspect]
     Active Substance: GADOTERATE MEGLUMINE
     Indication: Angiogram

REACTIONS (3)
  - Vomiting [Recovered/Resolved]
  - Dizziness [Recovered/Resolved]
  - Flushing [Unknown]

NARRATIVE: CASE EVENT DATE: 20231206
